FAERS Safety Report 6451646-0 (Version None)
Quarter: 2009Q4

REPORT INFORMATION
  Report Type: 
  Country: None (occurrence: None)
  Receive Date: 20091120
  Receipt Date: 20091120
  Transmission Date: 20100525
  Serious: Yes (Life-Threatening, Hospitalization)
  Sender: FDA-Public Use
  Company Number: None

PATIENT
  Age: 64 Year
  Sex: Female
  Weight: 108.8633 kg

DRUGS (2)
  1. NAPROXEN [Suspect]
     Indication: PAIN
     Dosage: 1 TABLET TWICE DAILY PO
     Route: 048
     Dates: start: 20081001, end: 20091002
  2. NAPROXEN [Suspect]
     Indication: PAIN
     Dosage: 1 TABLET TWICE DAILY PO
     Route: 048
     Dates: start: 20081001, end: 20091102

REACTIONS (2)
  - DUODENAL ULCER [None]
  - GASTRIC ULCER [None]
